FAERS Safety Report 12480304 (Version 1)
Quarter: 2016Q2

REPORT INFORMATION
  Report Type: Spontaneous
  Country: None (occurrence: None)
  Receive Date: 20160617
  Receipt Date: 20160617
  Transmission Date: 20160815
  Serious: No
  Sender: FDA-Public Use
  Company Number: None

PATIENT
  Sex: Female

DRUGS (1)
  1. PREDNISONE. [Suspect]
     Active Substance: PREDNISONE

REACTIONS (6)
  - Diverticulitis [None]
  - Abdominal pain upper [None]
  - Asphyxia [None]
  - Fatigue [None]
  - Dyspnoea [None]
  - Diarrhoea [None]
